FAERS Safety Report 17396803 (Version 2)
Quarter: 2020Q1

REPORT INFORMATION
  Report Type: Spontaneous
  Country: US (occurrence: US)
  Receive Date: 20200210
  Receipt Date: 20200323
  Transmission Date: 20200409
  Serious: No
  Sender: FDA-Public Use
  Company Number: US-PFIZER INC-2019519870

PATIENT
  Age: 41 Year
  Sex: Female

DRUGS (17)
  1. PERJETA [Concomitant]
     Active Substance: PERTUZUMAB
     Indication: CHEMOTHERAPY
     Dosage: UNK, CYCLIC (6 CYCLES IN ROUGHLY 3 WEEK INCREMENTS)
     Dates: start: 20160825, end: 20161220
  2. AMLODIPINE [Concomitant]
     Active Substance: AMLODIPINE BESYLATE
     Dosage: UNK
     Dates: start: 20071104, end: 20170507
  3. TAXOTERE [Suspect]
     Active Substance: DOCETAXEL
     Dosage: 149 MG, CYCLIC (TOTAL SIX CYCLES, EVERY THREE WEEKS)
     Dates: start: 20161011
  4. TAXOTERE [Suspect]
     Active Substance: DOCETAXEL
     Dosage: 133 MG, CYCLIC (TOTAL SIX CYCLES, EVERY THREE WEEKS)
     Dates: start: 20161103
  5. DOCETAXEL. [Suspect]
     Active Substance: DOCETAXEL
     Dosage: 149 MG, CYCLIC (TOTAL SIX CYCLES, EVERY THREE WEEKS)
     Dates: start: 20160915
  6. DOCETAXEL. [Suspect]
     Active Substance: DOCETAXEL
     Dosage: 133 MG, CYCLIC (TOTAL SIX CYCLES, EVERY THREE WEEKS)
     Dates: start: 20161103
  7. TAXOTERE [Suspect]
     Active Substance: DOCETAXEL
     Dosage: 149 MG, CYCLIC (TOTAL SIX CYCLES, EVERY THREE WEEKS)
     Dates: start: 20160915
  8. DOCETAXEL. [Suspect]
     Active Substance: DOCETAXEL
     Indication: BREAST CANCER FEMALE
     Dosage: 149 MG, CYCLIC (TOTAL SIX CYCLES, EVERY THREE WEEKS)
     Dates: start: 20160825
  9. PARAPLATIN [Concomitant]
     Active Substance: CARBOPLATIN
     Indication: CHEMOTHERAPY
     Dosage: UNK, CYCLIC (6 CYCLES IN ROUGHLY 3 WEEK INCREMENTS)
     Dates: start: 20160825, end: 20161220
  10. HERCEPTIN [Concomitant]
     Active Substance: TRASTUZUMAB
     Indication: CHEMOTHERAPY
     Dosage: UNK UNK, CYCLIC (6 CYCLES IN ROUGHLY 3 WEEK INCREMENTS)
     Dates: start: 20160825, end: 20161220
  11. TAXOTERE [Suspect]
     Active Substance: DOCETAXEL
     Dosage: 133 MG, CYCLIC (TOTAL SIX CYCLES, EVERY THREE WEEKS)
     Dates: start: 20161129
  12. TAXOTERE [Suspect]
     Active Substance: DOCETAXEL
     Dosage: 133 MG, CYCLIC (TOTAL SIX CYCLES, EVERY THREE WEEKS)
     Dates: start: 20161220
  13. HERCEPTIN [Concomitant]
     Active Substance: TRASTUZUMAB
     Dosage: UNK
     Dates: start: 20170110, end: 20170808
  14. DOCETAXEL. [Suspect]
     Active Substance: DOCETAXEL
     Dosage: 133 MG, CYCLIC (TOTAL SIX CYCLES, EVERY THREE WEEKS)
     Dates: start: 20161129
  15. DOCETAXEL. [Suspect]
     Active Substance: DOCETAXEL
     Dosage: 149 MG, CYCLIC (TOTAL SIX CYCLES, EVERY THREE WEEKS)
     Dates: start: 20161011
  16. DOCETAXEL. [Suspect]
     Active Substance: DOCETAXEL
     Dosage: 133 MG, CYCLIC, (TOTAL SIX CYCLES, EVERY THREE WEEKS)
     Dates: start: 20161220
  17. TAXOTERE [Suspect]
     Active Substance: DOCETAXEL
     Indication: BREAST CANCER FEMALE
     Dosage: 149 MG, CYCLIC (TOTAL SIX CYCLES, EVERY THREE WEEKS)
     Dates: start: 20160825

REACTIONS (5)
  - Hair colour changes [Not Recovered/Not Resolved]
  - Hair texture abnormal [Not Recovered/Not Resolved]
  - Hair disorder [Not Recovered/Not Resolved]
  - Alopecia [Not Recovered/Not Resolved]
  - Madarosis [Not Recovered/Not Resolved]

NARRATIVE: CASE EVENT DATE: 20160830
